FAERS Safety Report 7340695-6 (Version None)
Quarter: 2011Q1

REPORT INFORMATION
  Report Type: 
  Country: None (occurrence: None)
  Receive Date: 20110309
  Receipt Date: 20110228
  Transmission Date: 20110831
  Serious: Yes (Other)
  Sender: FDA-Public Use
  Company Number: US-JNJFOC-20110300667

PATIENT
  Age: 76 Year
  Sex: Male
  Weight: 90.72 kg

DRUGS (3)
  1. REMICADE [Suspect]
     Indication: RHEUMATOID ARTHRITIS
     Dosage: REPORTED AS FOR SEVERAL YEARS AND SINCE 2008 AT THE REPORTER'S SITE
     Route: 042
  2. REMICADE [Suspect]
     Route: 042
  3. FENTANYL-100 [Concomitant]
     Indication: PAIN
     Route: 062

REACTIONS (2)
  - THERAPEUTIC RESPONSE DECREASED [None]
  - SURGERY [None]
